FAERS Safety Report 18957368 (Version 1)
Quarter: 2021Q1

REPORT INFORMATION
  Report Type: Spontaneous
  Country: US (occurrence: US)
  Receive Date: 20210301
  Receipt Date: 20210301
  Transmission Date: 20210420
  Serious: Yes (Life-Threatening, Disabling)
  Sender: FDA-Public Use
  Company Number: None

PATIENT
  Age: 55 Year
  Sex: Female
  Weight: 89.55 kg

DRUGS (8)
  1. METRONIDAZOLE 500 MG TABLET [Suspect]
     Active Substance: METRONIDAZOLE
     Indication: ANIMAL BITE
     Dosage: ?          QUANTITY:1 TABLET(S);?
     Route: 048
     Dates: start: 20210119, end: 20210120
  2. VITAMIN D3 [Concomitant]
     Active Substance: CHOLECALCIFEROL
  3. LOW DOSE ASPIRIN [Concomitant]
     Active Substance: ASPIRIN
  4. ADVIL MIGRAINE [Concomitant]
     Active Substance: IBUPROFEN
  5. CLARITIN [Concomitant]
     Active Substance: LORATADINE
  6. LEVOTHYROXINE. [Concomitant]
     Active Substance: LEVOTHYROXINE
  7. TYLENOL EXTRA STRENGTH [Concomitant]
     Active Substance: ACETAMINOPHEN
  8. CIPROFLOXACIN HCL 500 MG TABLET [Suspect]
     Active Substance: CIPROFLOXACIN HYDROCHLORIDE
     Indication: ANIMAL BITE
     Dosage: ?          QUANTITY:1 TABLET(S);?
     Route: 048
     Dates: start: 20210119, end: 20210120

REACTIONS (18)
  - Panic attack [None]
  - Abdominal pain [None]
  - Dysphagia [None]
  - Tinnitus [None]
  - Chest discomfort [None]
  - Irregular breathing [None]
  - Pain in extremity [None]
  - Disorientation [None]
  - Headache [None]
  - Fatigue [None]
  - Arthralgia [None]
  - Speech disorder [None]
  - Peripheral swelling [None]
  - Tendon pain [None]
  - Swollen tongue [None]
  - Loss of personal independence in daily activities [None]
  - Gait disturbance [None]
  - Musculoskeletal stiffness [None]

NARRATIVE: CASE EVENT DATE: 20210120
